FAERS Safety Report 12430798 (Version 1)
Quarter: 2016Q2

REPORT INFORMATION
  Report Type: Spontaneous
  Country: BE (occurrence: BE)
  Receive Date: 20160602
  Receipt Date: 20160602
  Transmission Date: 20160815
  Serious: Yes (Other)
  Sender: FDA-Public Use
  Company Number: BE-009507513-1606BEL000399

PATIENT
  Sex: Female

DRUGS (1)
  1. FINASTERIDE. [Suspect]
     Active Substance: FINASTERIDE
     Dosage: UNK
     Route: 048

REACTIONS (5)
  - Restlessness [Unknown]
  - Heart rate increased [Unknown]
  - Suicidal ideation [Unknown]
  - Product use issue [Unknown]
  - Middle insomnia [Unknown]
